FAERS Safety Report 6013875-X (Version None)
Quarter: 2008Q4

REPORT INFORMATION
  Report Type: 
  Country: None (occurrence: None)
  Receive Date: 20081219
  Receipt Date: 20081212
  Transmission Date: 20090506
  Serious: Yes (Hospitalization)
  Sender: FDA-Public Use
  Company Number: HU-ELI_LILLY_AND_COMPANY-HU200812003518

PATIENT
  Age: 70 Year
  Sex: Female

DRUGS (2)
  1. HUMULIN R [Suspect]
     Indication: DIABETES MELLITUS
     Dosage: 8 IU, 3/D
     Route: 058
     Dates: start: 20040501
  2. HUMULIN N [Suspect]
     Indication: DIABETES MELLITUS
     Dosage: 10 IU, EACH EVENING
     Route: 058
     Dates: start: 20040501

REACTIONS (3)
  - BLOOD GLUCOSE INCREASED [None]
  - COUGH [None]
  - OESOPHAGEAL POLYP [None]
